FAERS Safety Report 6008365-4 (Version None)
Quarter: 2008Q4

REPORT INFORMATION
  Report Type: 
  Country: None (occurrence: None)
  Receive Date: 20081215
  Receipt Date: 20081211
  Transmission Date: 20090506
  Serious: Yes (Hospitalization)
  Sender: FDA-Public Use
  Company Number: 2008SP025161

PATIENT
  Age: 63 Year
  Sex: Female

DRUGS (4)
  1. NASONEX [Suspect]
     Indication: SINUSITIS
     Dosage: 1 DF; QD; INH
     Route: 055
     Dates: start: 19920101
  2. REVAXIS (INACTIVATED DTP VACCINE) (NO PREF. NAME) [Suspect]
     Indication: VACCINIA
     Dosage: 1 DF; ONCE; IM
     Route: 030
     Dates: start: 20080728, end: 20080728
  3. BECONASE [Suspect]
     Indication: ASTHMA
     Dosage: 250 MCG; QD; INH
     Route: 055
     Dates: start: 19920101
  4. LEVOTHYROXINE SODIUM [Suspect]
     Indication: HYPOTHYROIDISM
     Dosage: 25 MCG; QD; PO
     Route: 048
     Dates: start: 20050101

REACTIONS (3)
  - CHOLESTASIS [None]
  - CYTOLYTIC HEPATITIS [None]
  - INFLUENZA LIKE ILLNESS [None]
